FAERS Safety Report 7307666-7 (Version None)
Quarter: 2011Q1

REPORT INFORMATION
  Report Type: 
  Country: None (occurrence: None)
  Receive Date: 20110210
  Receipt Date: 20110120
  Transmission Date: 20110831
  Serious: Yes (Death)
  Sender: FDA-Public Use
  Company Number: AE11-007-8

PATIENT
  Age: 38 Year
  Sex: Female

DRUGS (3)
  1. ACETAMINOPHEN [Suspect]
  2. LORCET (ACETAMINOPHEN/HYDROCODONE) [Suspect]
  3. OXYCODONE [Suspect]

REACTIONS (1)
  - INTENTIONAL DRUG MISUSE [None]
